FAERS Safety Report 20459500 (Version 1)
Quarter: 2022Q1

REPORT INFORMATION
  Report Type: Report from Study
  Country: US (occurrence: US)
  Receive Date: 20220211
  Receipt Date: 20220211
  Transmission Date: 20220423
  Serious: Yes (Life-Threatening, Hospitalization, Disabling)
  Sender: FDA-Public Use
  Company Number: US-JAZZ-2020-US-016496

PATIENT
  Age: 12 Year
  Sex: Female
  Weight: 33.8 kg

DRUGS (15)
  1. ASPARAGINASE ERWINIA CHRYSANTHEMI [Suspect]
     Active Substance: ASPARAGINASE ERWINIA CHRYSANTHEMI
     Dosage: 37.5 MILLIGRAM/SQ. METER, 3X WEEKLY PER 2W COURSE
     Route: 030
     Dates: start: 20201120, end: 20201202
  2. NEURONTIN [Concomitant]
     Active Substance: GABAPENTIN
     Dosage: 7 MILLILITER, TID
     Route: 048
     Dates: start: 20200915
  3. ZOVIRAX [ACICLOVIR SODIUM] [Concomitant]
     Dosage: 10 MILLILITER, BID
     Route: 048
     Dates: start: 20200908
  4. DRONABINOL [Concomitant]
     Active Substance: DRONABINOL
     Dosage: 1 MILLILITER, TID
     Route: 048
     Dates: start: 20201005
  5. PEPCID AC [Concomitant]
     Active Substance: FAMOTIDINE
     Dosage: 3 MILLILITER, BID
     Route: 048
     Dates: start: 20200724
  6. CANCIDAS [Concomitant]
     Active Substance: CASPOFUNGIN ACETATE
     Dosage: 50 MILLIGRAM, QD
     Route: 042
     Dates: start: 20200904
  7. VINCRISTINE [Concomitant]
     Active Substance: VINCRISTINE
     Dosage: 0.75 MILLIGRAM/SQ. METER, SINGLE
     Route: 042
     Dates: start: 20201125, end: 20201125
  8. ZOFRAN [Concomitant]
     Active Substance: ONDANSETRON HYDROCHLORIDE
     Dosage: 4 MILLIGRAM, Q8H PRN
     Route: 048
     Dates: start: 20200615
  9. ZOFRAN [Concomitant]
     Active Substance: ONDANSETRON HYDROCHLORIDE
     Dosage: 0.15 MILLIGRAM/KILOGRAM 30MIN PRE-CHEMO, THEN Q8H PRN
     Route: 042
     Dates: start: 20201103, end: 20201130
  10. VORICONAZOLE [Concomitant]
     Active Substance: VORICONAZOLE
     Dosage: 7.3 MILLILITER, BID
     Route: 048
     Dates: start: 20201112
  11. VITAMIN D3 [Concomitant]
     Active Substance: CHOLECALCIFEROL
     Dosage: 50 MICROGRAM, QD
     Route: 048
     Dates: start: 20200908
  12. EMLA [Concomitant]
     Active Substance: LIDOCAINE\PRILOCAINE
     Dosage: 2.5-2.5%, PRN
     Route: 061
     Dates: start: 20200724
  13. ZYPREXA [Concomitant]
     Active Substance: OLANZAPINE
     Dosage: 5 MILLIGRAM, PRN AT BEDTIME
     Route: 048
     Dates: start: 20201130
  14. ROXICODONE [Concomitant]
     Active Substance: OXYCODONE HYDROCHLORIDE
     Dosage: 4 MILLILITER, Q6H PRN
     Route: 048
     Dates: start: 20201130
  15. CANNABIS SATIVA SUBSP. INDICA TOP [Concomitant]
     Active Substance: CANNABIS SATIVA SUBSP. INDICA TOP
     Dosage: 10 MILLIGRAM THC (1 GUMMY), PRN
     Route: 048
     Dates: start: 20201201

REACTIONS (5)
  - Pancreatitis acute [Not Recovered/Not Resolved]
  - Pancreatitis [Recovering/Resolving]
  - Pancreatic pseudocyst [Not Recovered/Not Resolved]
  - Pancreatitis acute [Recovered/Resolved with Sequelae]
  - Pancreatic pseudocyst [Recovered/Resolved]

NARRATIVE: CASE EVENT DATE: 20201202
